FAERS Safety Report 17160582 (Version 1)
Quarter: 2019Q4

REPORT INFORMATION
  Report Type: Spontaneous
  Country: ES (occurrence: ES)
  Receive Date: 20191216
  Receipt Date: 20191216
  Transmission Date: 20200122
  Serious: Yes (Hospitalization)
  Sender: FDA-Public Use
  Company Number: ES-PFIZER INC-2019538512

PATIENT
  Age: 38 Year
  Sex: Female
  Weight: 84 kg

DRUGS (1)
  1. DALACIN [Suspect]
     Active Substance: CLINDAMYCIN
     Indication: INFECTION
     Dosage: UNK
     Route: 048
     Dates: start: 20191122, end: 20191123

REACTIONS (1)
  - Periorbital swelling [Recovering/Resolving]

NARRATIVE: CASE EVENT DATE: 20191122
